FAERS Safety Report 5057039-5 (Version None)
Quarter: 2006Q2

REPORT INFORMATION
  Report Type: 
  Country: None (occurrence: None)
  Receive Date: 20060622
  Receipt Date: 20060117
  Transmission Date: 20061013
  Serious: Yes (Death, Other)
  Sender: FDA-Public Use
  Company Number: US-JNJFOC-20060102280

PATIENT
  Age: 19 Year
  Sex: Male

DRUGS (1)
  1. FENTANYL [Suspect]
     Indication: DRUG USE FOR UNKNOWN INDICATION
     Dosage: INHALATION
     Dates: start: 20051227

REACTIONS (1)
  - DRUG ABUSER [None]
